FAERS Safety Report 14177903 (Version 1)
Quarter: 2017Q4

REPORT INFORMATION
  Report Type: Spontaneous
  Country: US (occurrence: US)
  Receive Date: 20171110
  Receipt Date: 20171110
  Transmission Date: 20180321
  Serious: No
  Sender: FDA-Public Use
  Company Number: US-BAYER-2017-214524

PATIENT
  Sex: Female
  Weight: 10 kg

DRUGS (1)
  1. CLARITIN [Suspect]
     Active Substance: LORATADINE
     Indication: HYPERSENSITIVITY
     Dosage: 1 HALF A TEASPOON PER DAY
     Route: 048
     Dates: start: 2016

REACTIONS (4)
  - Swelling face [Recovering/Resolving]
  - Peripheral swelling [Recovered/Resolved]
  - Inappropriate prescribing [Unknown]
  - Product use issue [Unknown]

NARRATIVE: CASE EVENT DATE: 20171106
